FAERS Safety Report 24778763 (Version 1)
Quarter: 2024Q4

REPORT INFORMATION
  Report Type: Spontaneous
  Country: US (occurrence: None)
  Receive Date: 20241226
  Receipt Date: 20241226
  Transmission Date: 20250115
  Serious: Yes (Other)
  Sender: Public
  Company Number: None

PATIENT
  Sex: 0

DRUGS (1)
  1. LEVOFLOXACIN [Suspect]
     Active Substance: LEVOFLOXACIN

REACTIONS (5)
  - Insomnia [None]
  - Anxiety [None]
  - Agitation [None]
  - Feeling of despair [None]
  - Cognitive disorder [None]

NARRATIVE: CASE EVENT DATE: 20241224
